FAERS Safety Report 8524833-5 (Version None)
Quarter: 2012Q3

REPORT INFORMATION
  Report Type: 
  Country: None (occurrence: None)
  Receive Date: 20120720
  Receipt Date: 20120706
  Transmission Date: 20120928
  Serious: Yes (Hospitalization)
  Sender: FDA-Public Use
  Company Number: SE-009507513-1207SWE001759

PATIENT

DRUGS (4)
  1. HYDROXOCOBALAMIN [Concomitant]
     Dosage: UNK, QD
  2. ASMANEX TWISTHALER [Suspect]
     Dosage: 200 MICROGRAM, BID
  3. FORMOTEROL FUMARATE [Concomitant]
     Dosage: UNK, BID
  4. LEVOTHYROXINE SODIUM [Concomitant]
     Dosage: UNK, QD

REACTIONS (2)
  - PNEUMONIA [None]
  - UNDERDOSE [None]
